FAERS Safety Report 14082109 (Version 1)
Quarter: 2017Q4

REPORT INFORMATION
  Report Type: Spontaneous
  Country: HR (occurrence: HR)
  Receive Date: 20171013
  Receipt Date: 20171013
  Transmission Date: 20180321
  Serious: Yes (Life-Threatening)
  Sender: FDA-Public Use
  Company Number: HR-ASTRAZENECA-2017SF04196

PATIENT
  Sex: Female

DRUGS (3)
  1. SERTRALINE [Suspect]
     Active Substance: SERTRALINE HYDROCHLORIDE
     Dosage: 12 DF
     Route: 048
     Dates: start: 20170822, end: 20170822
  2. QUETIAPINE. [Suspect]
     Active Substance: QUETIAPINE
     Dosage: 4 DF
     Route: 048
     Dates: start: 20170822, end: 20170822
  3. HELEX [Suspect]
     Active Substance: ALPRAZOLAM
     Dosage: 4 DF
     Route: 048
     Dates: start: 20170822, end: 20170822

REACTIONS (3)
  - Somnolence [Unknown]
  - Suicide attempt [Unknown]
  - Intentional overdose [Unknown]

NARRATIVE: CASE EVENT DATE: 20170822
